FAERS Safety Report 8239269 (Version 3)
Quarter: 2013Q2

REPORT INFORMATION
  Report Type: Spontaneous
  Country: US (occurrence: US)
  Receive Date: 20111110
  Receipt Date: 20130424
  Transmission Date: 20140414
  Serious: Yes (Other)
  Sender: FDA-Public Use
  Company Number: US-ELI_LILLY_AND_COMPANY-US201107004326

PATIENT
  Sex: Female
  Weight: 76.6 kg

DRUGS (13)
  1. FORTEO [Suspect]
     Indication: OSTEOPOROSIS
     Dosage: 20 UG, QD
     Route: 058
  2. FORTEO [Suspect]
     Dosage: 20 UG, QD
     Route: 058
  3. FORTEO [Suspect]
     Dosage: 20 UG, QD
     Route: 058
  4. FORTEO [Suspect]
     Dosage: 20 UG, QD
     Route: 058
  5. FORTEO [Suspect]
     Dosage: 20 UG, QD
     Route: 058
  6. FORTEO [Suspect]
     Dosage: 20 UG, QD
     Route: 058
  7. FORTEO [Suspect]
     Dosage: 20 UG, QD
     Route: 058
     Dates: end: 20130331
  8. ALEVE [Concomitant]
     Dosage: 2 DF, QD
     Route: 048
  9. CALCIUM [Concomitant]
     Dosage: 1 DF, BID
  10. CENTRUM                            /00554501/ [Concomitant]
     Dosage: 1 DF, QD
     Route: 048
  11. LEVOTHYROXINE [Concomitant]
     Dosage: 1 DF, QD
     Route: 048
  12. VITAMIN C [Concomitant]
     Dosage: 1 DF, QD
     Route: 048
  13. VITAMIN D3 [Concomitant]
     Dosage: 1 DF, QD
     Route: 048

REACTIONS (15)
  - Skin cancer [Unknown]
  - Weight increased [Unknown]
  - Joint swelling [Unknown]
  - Abdominal distension [Unknown]
  - Abdominal pain upper [Unknown]
  - Insomnia [Not Recovered/Not Resolved]
  - Vomiting [Unknown]
  - Injection site bruising [Not Recovered/Not Resolved]
  - Muscle spasms [Unknown]
  - Nausea [Unknown]
  - Injection site scar [Unknown]
  - Injection site pain [Unknown]
  - Injection site nodule [Unknown]
  - Viral infection [Unknown]
  - Drug dose omission [Unknown]
